FAERS Safety Report 9234187 (Version 1)
Quarter: 2013Q2

REPORT INFORMATION
  Report Type: Spontaneous
  Country: BR (occurrence: BR)
  Receive Date: 20130416
  Receipt Date: 20130416
  Transmission Date: 20140414
  Serious: Yes (Other)
  Sender: FDA-Public Use
  Company Number: BR-BAYER-2013-047446

PATIENT
  Age: 15 Year
  Sex: Female

DRUGS (1)
  1. QLAIRA [Suspect]
     Route: 048

REACTIONS (4)
  - Metrorrhagia [None]
  - Menstruation delayed [Not Recovered/Not Resolved]
  - Urinary tract infection [None]
  - Inappropriate schedule of drug administration [None]
